FAERS Safety Report 7934220 (Version 2)
Quarter: 2013Q1

REPORT INFORMATION
  Report Type: Spontaneous
  Country: US (occurrence: None)
  Receive Date: 20110415
  Receipt Date: 20121108
  Transmission Date: 20140127
  Serious: Yes (Disabling, Other)
  Sender: FDA-Public Use
  Company Number: 2011MA003413

PATIENT
  Sex: Female

DRUGS (30)
  1. METOCLOPRAMIDE [Suspect]
     Dosage: PRN
     Dates: start: 20020313, end: 20100103
  2. ACETAMINOPHEN W/CODEINE [Concomitant]
  3. AMLODIPINE [Concomitant]
  4. CEPHALEXIN [Concomitant]
  5. CITALOPRAM [Concomitant]
  6. DEPAKOTE [Concomitant]
  7. DICYCLOMINE [Concomitant]
  8. DIFLUCAN [Concomitant]
  9. DYNACIRC [Concomitant]
  10. FLUCONAZOLE [Concomitant]
  11. FUROSEMIDE [Concomitant]
  12. HCTZ [Concomitant]
  13. HYDROCODONE [Concomitant]
  14. LAMICTAL [Concomitant]
  15. LAMOTRIGINE [Concomitant]
  16. LISINOPRIL [Concomitant]
  17. METOPROLOL [Concomitant]
  18. METRONIDAZOLE [Concomitant]
  19. NAPROXEN [Concomitant]
  20. NITROFURANTOIN [Concomitant]
  21. NITROQUICK [Concomitant]
  22. NORVASC [Concomitant]
  23. PENICILLIN [Concomitant]
  24. PLAVIX [Concomitant]
  25. PREDNISONE [Concomitant]
  26. PROAIR [Concomitant]
  27. PROMETHAZINE [Concomitant]
  28. SIMVASTATIN [Concomitant]
  29. SULFAMETH/TRIMETHOPRIM [Concomitant]
  30. TRAZODONE [Concomitant]

REACTIONS (13)
  - Nervous system disorder [None]
  - Akathisia [None]
  - Tardive dyskinesia [None]
  - Dystonia [None]
  - Visual impairment [None]
  - Movement disorder [None]
  - Pain [None]
  - Depression [None]
  - Suicidal ideation [None]
  - Economic problem [None]
  - Impaired work ability [None]
  - Drug interaction [None]
  - Emotional disorder [None]
